FAERS Safety Report 14320659 (Version 2)
Quarter: 2018Q1

REPORT INFORMATION
  Report Type: Spontaneous
  Country: US (occurrence: US)
  Receive Date: 20171222
  Receipt Date: 20180117
  Transmission Date: 20180509
  Serious: No
  Sender: FDA-Public Use
  Company Number: US-MYLANLABS-2017M1077333

PATIENT
  Age: 34 Year
  Sex: Male
  Weight: 72.57 kg

DRUGS (1)
  1. DESVENLAFAXINE MYLAN [Suspect]
     Active Substance: DESVENLAFAXINE SUCCINATE
     Indication: DEPRESSION
     Dosage: 50 MG, UNK
     Route: 048
     Dates: start: 20170812, end: 20170813

REACTIONS (13)
  - Headache [Recovered/Resolved]
  - Hypertension [Recovering/Resolving]
  - Cognitive disorder [Recovering/Resolving]
  - Poisoning [Recovered/Resolved]
  - Hyperhidrosis [Recovered/Resolved]
  - Affect lability [Recovered/Resolved]
  - Mydriasis [Recovered/Resolved]
  - Burning sensation [Recovered/Resolved]
  - Emotional distress [Recovered/Resolved]
  - Photophobia [Recovered/Resolved]
  - Priapism [Recovered/Resolved]
  - Dyspnoea [Recovered/Resolved]
  - Dizziness [Recovered/Resolved]

NARRATIVE: CASE EVENT DATE: 201708
